FAERS Safety Report 16241617 (Version 1)
Quarter: 2019Q2

REPORT INFORMATION
  Report Type: Spontaneous
  Country: PL (occurrence: PL)
  Receive Date: 20190426
  Receipt Date: 20190426
  Transmission Date: 20190711
  Serious: Yes (Other)
  Sender: FDA-Public Use
  Company Number: PL-AUROBINDO-AUR-APL-2019-023082

PATIENT

DRUGS (7)
  1. ATORVASTATIN [Suspect]
     Active Substance: ATORVASTATIN
     Indication: ATRIAL FIBRILLATION
  2. ATORVASTATIN [Suspect]
     Active Substance: ATORVASTATIN
     Indication: HYPERTENSION
     Dosage: 20 MILLIGRAM, UNK
     Route: 065
  3. APIXABAN [Suspect]
     Active Substance: APIXABAN
     Indication: HYPERTENSION
     Dosage: 10 MILLIGRAM, ONCE A DAY, 5 MILLIGRAM, BID
     Route: 065
  4. APIXABAN [Suspect]
     Active Substance: APIXABAN
     Indication: CEREBROVASCULAR ACCIDENT PROPHYLAXIS
  5. PERINDOPRIL [Suspect]
     Active Substance: PERINDOPRIL
     Indication: ATRIAL FIBRILLATION
     Dosage: 10 MILLIGRAM, UNK
     Route: 065
  6. CLOPIDOGREL HYDROGEN SULFATE [Suspect]
     Active Substance: CLOPIDOGREL BISULFATE
     Indication: PRODUCT USED FOR UNKNOWN INDICATION
     Dosage: UNK
     Route: 065
  7. PERINDOPRIL [Suspect]
     Active Substance: PERINDOPRIL
     Indication: HYPERTENSION

REACTIONS (2)
  - Acute myocardial infarction [Unknown]
  - Contraindicated product administered [Unknown]
